FAERS Safety Report 6253958-2 (Version None)
Quarter: 2009Q3

REPORT INFORMATION
  Report Type: 
  Country: None (occurrence: None)
  Receive Date: 20090702
  Receipt Date: 20090625
  Transmission Date: 20100115
  Serious: Yes (Hospitalization)
  Sender: FDA-Public Use
  Company Number: FI-JNJFOC-20090608812

PATIENT
  Age: 80 Year
  Sex: Female

DRUGS (4)
  1. DURAGESIC-100 [Suspect]
     Route: 062
  2. DURAGESIC-100 [Suspect]
     Indication: ARTHRALGIA
     Route: 062
  3. MAREVAN [Concomitant]
     Route: 065
  4. PARACETAMOL [Concomitant]
     Route: 065

REACTIONS (2)
  - SEPSIS [None]
  - WITHDRAWAL SYNDROME [None]
